FAERS Safety Report 10017440 (Version 1)
Quarter: 2014Q1

REPORT INFORMATION
  Report Type: Spontaneous
  Country: US (occurrence: US)
  Receive Date: 20140318
  Receipt Date: 20140318
  Transmission Date: 20141002
  Serious: No
  Sender: FDA-Public Use
  Company Number: US-PFIZER INC-2014073819

PATIENT
  Sex: Female

DRUGS (6)
  1. ZITHROMAX [Suspect]
     Dosage: UNK
  2. VANCOMYCIN HCL [Suspect]
     Dosage: UNK
  3. CLINDAMYCIN PHOSPHATE [Suspect]
     Dosage: UNK
  4. CEFTIN [Suspect]
     Dosage: UNK
  5. KEFLEX [Suspect]
     Dosage: UNK
  6. ULTRAM [Suspect]
     Dosage: UNK

REACTIONS (1)
  - Drug hypersensitivity [Unknown]
